FAERS Safety Report 4651852-1 (Version None)
Quarter: 2005Q2

REPORT INFORMATION
  Report Type: 
  Country: None (occurrence: None)
  Receive Date: 20050504
  Receipt Date: 20050426
  Transmission Date: 20051028
  Serious: Yes (Other)
  Sender: FDA-Public Use
  Company Number: US-GLAXOSMITHKLINE-A0555841A

PATIENT
  Age: 55 Year
  Sex: Male

DRUGS (4)
  1. WELLBUTRIN [Suspect]
     Indication: DEPRESSION
     Dosage: 300MG PER DAY
     Route: 048
     Dates: start: 20041201
  2. ALCOHOL [Suspect]
  3. REMERON [Concomitant]
  4. KLONOPIN [Concomitant]

REACTIONS (5)
  - BELLIGERENCE [None]
  - EMOTIONAL DISORDER [None]
  - FEELING ABNORMAL [None]
  - MENTAL STATUS CHANGES [None]
  - SCREAMING [None]
